FAERS Safety Report 22055397 (Version 3)
Quarter: 2023Q1

REPORT INFORMATION
  Report Type: Spontaneous
  Country: BR (occurrence: BR)
  Receive Date: 20230302
  Receipt Date: 20230316
  Transmission Date: 20230418
  Serious: Yes (Hospitalization, Other)
  Sender: FDA-Public Use
  Company Number: BR-PFIZER INC-PV202300038773

PATIENT
  Age: 57 Year
  Sex: Female
  Weight: 69 kg

DRUGS (22)
  1. PRISTIQ EXTENDED-RELEASE [Suspect]
     Active Substance: DESVENLAFAXINE SUCCINATE
     Indication: Depression
     Dosage: 1 TABLET IN THE MORNING
     Route: 048
     Dates: start: 20230116, end: 20230129
  2. PRISTIQ EXTENDED-RELEASE [Suspect]
     Active Substance: DESVENLAFAXINE SUCCINATE
     Dosage: 50 MILLIGRAM (AM)
     Route: 048
  3. PREGABALIN [Suspect]
     Active Substance: PREGABALIN
     Indication: Anxiety
     Dosage: 75 MILLIGRAM (PM)
     Route: 065
  4. PREGABALIN [Suspect]
     Active Substance: PREGABALIN
     Dosage: 75 MILLIGRAM (PM 1 TABLET AT NIGHT)
     Route: 048
     Dates: start: 20230116, end: 20230128
  5. ALPRAZOLAM [Suspect]
     Active Substance: ALPRAZOLAM
     Indication: Anxiety
     Dosage: 1 CAPSULE AT NIGHT
     Route: 048
     Dates: start: 20230116, end: 20230128
  6. ALPRAZOLAM [Suspect]
     Active Substance: ALPRAZOLAM
     Dosage: 1 DF
     Route: 048
  7. MACRODANTIN [Suspect]
     Active Substance: NITROFURANTOIN
     Indication: Antibiotic therapy
     Dosage: 1 CAPSULE 12/12H
     Route: 048
     Dates: start: 20230116, end: 20230120
  8. MACRODANTIN [Suspect]
     Active Substance: NITROFURANTOIN
     Dosage: UNK
     Route: 048
  9. PURAN [Suspect]
     Active Substance: LEVOTHYROXINE SODIUM
     Indication: Hypothyroidism
     Dosage: 25 UG, 1X/DAY
     Route: 065
  10. PURAN [Suspect]
     Active Substance: LEVOTHYROXINE SODIUM
     Dosage: 1 CAPSULE ON FAST
     Route: 048
     Dates: start: 20230116, end: 20230129
  11. DIPYRONE [Suspect]
     Active Substance: DIPYRONE
     Indication: Analgesic therapy
     Dosage: UNK (PRN)
     Route: 065
  12. DIPYRONE [Suspect]
     Active Substance: DIPYRONE
     Indication: Pain
     Dosage: 40 DROPS 8/8H
     Route: 048
     Dates: start: 20230116, end: 20230128
  13. DEXAMETHASONE PHOSPHATE [Suspect]
     Active Substance: DEXAMETHASONE PHOSPHATE
     Dosage: 2 MG, 2X/DAY
     Route: 048
  14. MIRABEGRON [Suspect]
     Active Substance: MIRABEGRON
     Indication: Depression
     Dosage: 50 MILLIGRAM (AT NIGHT)
     Route: 048
  15. MIRABEGRON [Suspect]
     Active Substance: MIRABEGRON
     Indication: Hypertonic bladder
     Dosage: 1 TABLET AT NIGHT
     Route: 048
     Dates: start: 20230116, end: 20230128
  16. TAGRISSO [Suspect]
     Active Substance: OSIMERTINIB
     Indication: Neoplasm malignant
     Dosage: 80 MG, 1X/DAY
     Route: 048
  17. TAGRISSO [Suspect]
     Active Substance: OSIMERTINIB
     Dosage: 1 TABLET AT 4 P.M.
     Route: 048
     Dates: start: 20230116, end: 20230128
  18. SCOPOLAMINE [Suspect]
     Active Substance: SCOPOLAMINE
     Indication: Pain
     Dosage: 10 MG IF PAIN
  19. XARELTO [Suspect]
     Active Substance: RIVAROXABAN
     Dosage: 20 MG, DAILY (AT NIGHT)
     Route: 065
  20. BUTYLSCOPOLAMINE BROMIDE [Suspect]
     Active Substance: BUTYLSCOPOLAMINE BROMIDE
     Indication: Pain
     Dosage: UNK (PRN)
     Route: 065
  21. FEXOFENADINE [Suspect]
     Active Substance: FEXOFENADINE HYDROCHLORIDE
     Indication: Hyperaemia
     Dosage: 180 MG, 1X/DAY
     Dates: start: 20230118
  22. DEXAMETHASONE [Suspect]
     Active Substance: DEXAMETHASONE
     Indication: Steroid withdrawal syndrome
     Dosage: 2 MILLIGRAM (AM)
     Route: 048
     Dates: start: 20230116, end: 20230120

REACTIONS (11)
  - Gait disturbance [Recovered/Resolved]
  - Eye disorder [Recovered/Resolved]
  - Gait disturbance [Unknown]
  - Condition aggravated [Unknown]
  - Lung neoplasm malignant [Unknown]
  - Hypothyroidism [Unknown]
  - Thrombosis [Unknown]
  - Depression [Unknown]
  - Hypertonic bladder [Unknown]
  - Hyperaemia [Recovered/Resolved]
  - Erythema [Recovered/Resolved]

NARRATIVE: CASE EVENT DATE: 20230118
